FAERS Safety Report 10501494 (Version 4)
Quarter: 2014Q4

REPORT INFORMATION
  Report Type: Spontaneous
  Country: GB (occurrence: GB)
  Receive Date: 20141007
  Receipt Date: 20141105
  Transmission Date: 20150528
  Serious: Yes (Death, Other)
  Sender: FDA-Public Use
  Company Number: GB-TEVA-511793ISR

PATIENT
  Age: 39 Year
  Sex: Male
  Weight: 93 kg

DRUGS (4)
  1. SUMATRIPTAN. [Concomitant]
     Active Substance: SUMATRIPTAN
  2. AMISULPRIDE [Suspect]
     Active Substance: AMISULPRIDE
     Dosage: 800 MILLIGRAM DAILY;
     Route: 048
     Dates: start: 20111128, end: 20111202
  3. CITALOPRAM [Interacting]
     Active Substance: CITALOPRAM HYDROBROMIDE
     Dosage: 20 MILLIGRAM DAILY;
     Route: 048
     Dates: start: 20111128, end: 20111202
  4. DIAZEPAM. [Concomitant]
     Active Substance: DIAZEPAM

REACTIONS (8)
  - Syncope [Unknown]
  - Circulatory collapse [Not Recovered/Not Resolved]
  - Drug interaction [Not Recovered/Not Resolved]
  - Sudden death [Fatal]
  - Head injury [Unknown]
  - Loss of consciousness [Unknown]
  - Fall [Unknown]
  - Long QT syndrome [Not Recovered/Not Resolved]

NARRATIVE: CASE EVENT DATE: 20111128
